FAERS Safety Report 6806468-5 (Version None)
Quarter: 2010Q2

REPORT INFORMATION
  Report Type: 
  Country: None (occurrence: None)
  Receive Date: 20100629
  Receipt Date: 20080214
  Transmission Date: 20101027
  Serious: No
  Sender: FDA-Public Use
  Company Number: US-PFIZER INC-2008013390

PATIENT
  Sex: Female
  Weight: 59.09 kg

DRUGS (2)
  1. XANAX [Suspect]
     Indication: STRESS
     Route: 048
     Dates: end: 20080211
  2. SYNTHROID [Concomitant]
     Indication: THYROID DISORDER

REACTIONS (10)
  - BRONCHITIS [None]
  - DIARRHOEA [None]
  - DIZZINESS [None]
  - EATING DISORDER [None]
  - HEADACHE [None]
  - INSOMNIA [None]
  - VERTIGO [None]
  - VISION BLURRED [None]
  - WEIGHT DECREASED [None]
  - WHITE BLOOD CELL COUNT DECREASED [None]
